FAERS Safety Report 16695408 (Version 1)
Quarter: 2019Q3

REPORT INFORMATION
  Report Type: Spontaneous
  Country: NL (occurrence: NL)
  Receive Date: 20190813
  Receipt Date: 20190813
  Transmission Date: 20191004
  Serious: Yes (Death)
  Sender: FDA-Public Use
  Company Number: NL-ACCORD-151137

PATIENT
  Age: 56 Year
  Sex: Female
  Weight: 62 kg

DRUGS (11)
  1. PARACETAMOL [Concomitant]
     Active Substance: ACETAMINOPHEN
     Dosage: 4DD2, STRENGTH: 500MG
  2. POTASSIUM CHLORIDE. [Concomitant]
     Active Substance: POTASSIUM CHLORIDE
     Dosage: 1DD30ML,BEVERAGE 1 MMOL / ML FLC 300 ML
  3. PANTOZOL [Concomitant]
     Active Substance: PANTOPRAZOLE SODIUM
     Dosage: 2DD1, STRENGTH: 40MG
  4. OXAZEPAM. [Concomitant]
     Active Substance: OXAZEPAM
     Dosage: IF NECESSARY, UP TO 1 X DAILY 1, STRENGTH: 10 MG
  5. MONO CEDOCARD RETARD CAPSULE MGA 100MG [Concomitant]
     Active Substance: ISOSORBIDE MONONITRATE
     Dosage: 1DD1, RET C 50MG
  6. EUTHYROX [Concomitant]
     Active Substance: LEVOTHYROXINE SODIUM
     Dosage: 1DD1, STRENGTH: 100MCG
  7. TEMAZEPAM. [Concomitant]
     Active Substance: TEMAZEPAM
     Dosage: 1DD1, STRENGTH: 10 MG
  8. THIAMINE. [Concomitant]
     Active Substance: THIAMINE
     Dosage: STRENGTH: 100MG, FOR 5 DAYS, ONE-TIME DAILY 1 ST
  9. PACLITAXEL/PACLITAXEL LIPOSOME [Suspect]
     Active Substance: PACLITAXEL
     Indication: OESOPHAGEAL CANCER METASTATIC
     Dosage: IF SO, PLEASE INDICATE HERE WHAT HAPPENED: NO
     Dates: start: 20190612, end: 20190714
  10. CYRAMZA [Interacting]
     Active Substance: RAMUCIRUMAB
     Indication: OESOPHAGEAL CANCER METASTATIC
     Dosage: 8 MG/KG, STRENGTH: 10 MG / ML
     Dates: start: 20190612, end: 20190714
  11. SPIRIVA RESPIMAT [Concomitant]
     Active Substance: TIOTROPIUM BROMIDE
     Dosage: 1DD2, STRENGTH: 2,5MCG/D 60D INHALATOR

REACTIONS (2)
  - Drug interaction [Fatal]
  - Gastrointestinal perforation [Fatal]

NARRATIVE: CASE EVENT DATE: 20190714
